FAERS Safety Report 20506520 (Version 1)
Quarter: 2022Q1

REPORT INFORMATION
  Report Type: Spontaneous
  Country: SE (occurrence: SE)
  Receive Date: 20220223
  Receipt Date: 20220223
  Transmission Date: 20220423
  Serious: Yes (Life-Threatening, Hospitalization)
  Sender: FDA-Public Use
  Company Number: None

PATIENT
  Age: 56 Year
  Sex: Male

DRUGS (15)
  1. METFORMIN HYDROCHLORIDE [Suspect]
     Active Substance: METFORMIN HYDROCHLORIDE
     Indication: Type 2 diabetes mellitus
     Dosage: 2X2,METFORMIN ACTAVIS 500 MG FILM-COATED TABLET
     Route: 048
     Dates: start: 20030220, end: 20220123
  2. LOPERAMIDE [Concomitant]
     Active Substance: LOPERAMIDE
     Dosage: 2 MG 1VB,DIMOR 2 MG FILM-COATED TABLET
     Route: 048
     Dates: start: 20220103
  3. SODIUM FLUORIDE [Concomitant]
     Active Substance: SODIUM FLUORIDE
     Dosage: 5 MG/G 2 CM X 2,SODIUM FLUORIDE MORNINGSIDE 5 MG / G TOOTHPASTE, 1 DF
     Route: 048
     Dates: start: 20211122
  4. CREON [Concomitant]
     Active Substance: PANCRELIPASE AMYLASE\PANCRELIPASE LIPASE\PANCRELIPASE PROTEASE
     Dosage: 2X3,CREON 25000 ENTERO CAPSULE, HARD
     Route: 048
     Dates: start: 20220103
  5. Lantus (SoloStar) [Concomitant]
     Dosage: 100 UNITS / ML 0 + 12E + 0,LANTUS (SOLOSTAR) 100 UNITS / ML SOLUTION FOR INJECTION IN A PRE-FILLED S
     Route: 058
     Dates: start: 20220103
  6. HERBALS\KARAYA GUM [Concomitant]
     Active Substance: HERBALS\KARAYA GUM
     Dosage: VB,INOLAXOL GRANULES IN SACHETS
     Route: 048
     Dates: start: 20210506
  7. ACETAMINOPHEN [Concomitant]
     Active Substance: ACETAMINOPHEN
     Dosage: 500 MG 1 VB,ALVEDON 500 MG FILM-COATED TABLET
     Route: 048
  8. HERBALS\KARAYA GUM [Concomitant]
     Active Substance: HERBALS\KARAYA GUM
     Dosage: 1VB, INOLAXOL ORAL POWDER IN SACHET,
     Route: 048
     Dates: start: 20210506
  9. HERBALS\KARAYA GUM [Concomitant]
     Active Substance: HERBALS\KARAYA GUM
     Dosage: 1X1, ORAL POWDER IN SACHET
     Route: 048
     Dates: start: 20210331
  10. DICLOFENAC [Concomitant]
     Active Substance: DICLOFENAC
     Dosage: 50 MG 1X3,DICLOFENAC BLUEFISH 50MG ENTEROTABLET
     Route: 048
     Dates: start: 20220112
  11. ATORVASTATIN [Concomitant]
     Active Substance: ATORVASTATIN
     Dosage: 10 MG 1X1,ATORVASTATIN ACTAVIS 10 MG FILM-COATED TABLET
     Route: 048
     Dates: start: 20200930
  12. LOSARTAN AND HYDROCHLOROTHIAZIDE [Concomitant]
     Active Substance: HYDROCHLOROTHIAZIDE\LOSARTAN POTASSIUM
     Dosage: 50 MG/12,5 MG 1X1,LOSARTAN / HYDROCHLOROTHIAZIDE TEVA 50 MG / 12.5 MG FILM-COATED TABLET, 1 DF
     Route: 048
     Dates: start: 20200930
  13. ATARAX [Concomitant]
     Active Substance: HYDROXYZINE HYDROCHLORIDE
     Dosage: 25 MG 1VB,ATARAX 25 MG FILM-COATED TABLET
     Route: 048
     Dates: start: 20211213
  14. BISOPROLOL [Concomitant]
     Active Substance: BISOPROLOL
     Dosage: 5 MG 1X1,BISOPROLOL SANDOZ 5 MG FILM-COATED TABLET
     Route: 048
     Dates: start: 20200930
  15. MIRTAZAPINE [Concomitant]
     Active Substance: MIRTAZAPINE
     Dosage: 30 MG 0+1,MIRTAZAPINE ACTAVIS 30 MG FILM-COATED TABLET
     Route: 048
     Dates: start: 20200930

REACTIONS (2)
  - Acute kidney injury [Not Recovered/Not Resolved]
  - Lactic acidosis [Not Recovered/Not Resolved]

NARRATIVE: CASE EVENT DATE: 20220123
